FAERS Safety Report 23961631 (Version 3)
Quarter: 2024Q4

REPORT INFORMATION
  Report Type: Report from Study
  Country: CN (occurrence: CN)
  Receive Date: 20240611
  Receipt Date: 20241217
  Transmission Date: 20250115
  Serious: Yes (Death, Other)
  Sender: PFIZER
  Company Number: CN-TAKEDA-2022TUS088581

PATIENT
  Age: 29 Year
  Sex: Female
  Weight: 57.2 kg

DRUGS (5)
  1. ADCETRIS [Suspect]
     Active Substance: BRENTUXIMAB VEDOTIN
     Indication: Anaplastic large cell lymphoma T- and null-cell types
     Dosage: 100 MILLIGRAM, 2/WEEK
     Route: 041
     Dates: start: 20220827
  2. ADCETRIS [Suspect]
     Active Substance: BRENTUXIMAB VEDOTIN
     Dosage: 100 MILLIGRAM, 2/WEEK
     Route: 041
     Dates: start: 20221009
  3. DOXORUBICIN HYDROCHLORIDE [Suspect]
     Active Substance: DOXORUBICIN HYDROCHLORIDE
     Indication: Anaplastic large cell lymphoma T- and null-cell types
     Dosage: 60 MILLIGRAM
     Route: 042
     Dates: start: 20220827, end: 20220827
  4. CYCLOPHOSPHAMIDE [Suspect]
     Active Substance: CYCLOPHOSPHAMIDE
     Indication: Anaplastic large cell lymphoma T- and null-cell types
     Dosage: 1 GRAM
     Route: 042
     Dates: start: 20220827, end: 20220827
  5. PREDNISOLONE [Suspect]
     Active Substance: PREDNISOLONE
     Indication: Anaplastic large cell lymphoma T- and null-cell types
     Dosage: 100 MILLIGRAM, QD
     Route: 042
     Dates: start: 20220827, end: 20220831

REACTIONS (8)
  - Anaplastic large cell lymphoma T- and null-cell types [Fatal]
  - Myelosuppression [Not Recovered/Not Resolved]
  - Pneumonia [Recovering/Resolving]
  - Malignant pleural effusion [Not Recovered/Not Resolved]
  - Malnutrition [Not Recovered/Not Resolved]
  - Vomiting [Recovered/Resolved]
  - Anaemia [Not Recovered/Not Resolved]
  - Nausea [Recovered/Resolved]

NARRATIVE: CASE EVENT DATE: 20220907
